FAERS Safety Report 7851848-2 (Version None)
Quarter: 2011Q4

REPORT INFORMATION
  Report Type: 
  Country: None (occurrence: None)
  Receive Date: 20111026
  Receipt Date: 20111017
  Transmission Date: 20120403
  Serious: Yes (Other)
  Sender: FDA-Public Use
  Company Number: FR-NOVOPROD-331726

PATIENT

DRUGS (5)
  1. FLUTICASONE PROPIONATE/SALMETEROL [Concomitant]
     Dosage: UNK
     Dates: start: 20000101
  2. VICTOZA [Suspect]
     Indication: TYPE 2 DIABETES MELLITUS
     Dosage: 1.2 MG, QD
     Route: 058
     Dates: start: 20101101, end: 20110501
  3. REPAGLINIDE [Concomitant]
     Dosage: 7 MG, QD
     Route: 048
     Dates: start: 20100801
  4. METFORMIN HCL [Concomitant]
     Dosage: 3 G, QD
     Route: 048
     Dates: start: 20100801
  5. AERIUS                             /01009701/ [Concomitant]
     Dosage: UNK
     Route: 048
     Dates: start: 20000101

REACTIONS (2)
  - PYREXIA [None]
  - HYPERTHERMIA [None]
